FAERS Safety Report 9715393 (Version 3)
Quarter: 2014Q2

REPORT INFORMATION
  Report Type: Report from Study
  Country: US (occurrence: US)
  Receive Date: 20131127
  Receipt Date: 20140603
  Transmission Date: 20141212
  Serious: Yes (Hospitalization, Other)
  Sender: FDA-Public Use
  Company Number: US-BIOGENIDEC-2013BI114489

PATIENT
  Age: 50 Year
  Sex: Female

DRUGS (5)
  1. TYSABRI [Suspect]
     Indication: MULTIPLE SCLEROSIS
     Route: 042
     Dates: start: 20130627
  2. AMANTADINE [Concomitant]
  3. DONEPEZIL [Concomitant]
  4. DRONABINOL [Concomitant]
  5. VITAMIN D [Concomitant]

REACTIONS (11)
  - Urinary tract infection [Unknown]
  - Oxygen saturation decreased [Unknown]
  - Faecal incontinence [Unknown]
  - Constipation [Unknown]
  - Fatigue [Unknown]
  - Balance disorder [Unknown]
  - Tremor [Unknown]
  - Musculoskeletal stiffness [Unknown]
  - Muscle spasms [Unknown]
  - Urinary incontinence [Unknown]
  - Generalised tonic-clonic seizure [Recovered/Resolved]
